FAERS Safety Report 17146568 (Version 5)
Quarter: 2020Q1

REPORT INFORMATION
  Report Type: Spontaneous
  Country: US (occurrence: US)
  Receive Date: 20191212
  Receipt Date: 20200211
  Transmission Date: 20200409
  Serious: Yes (Congenital Anomaly, Other)
  Sender: FDA-Public Use
  Company Number: US-AMGEN INC.-USASP2019204315

PATIENT
  Sex: Male
  Weight: 2.72 kg

DRUGS (6)
  1. IMITREX [Concomitant]
     Active Substance: SUMATRIPTAN SUCCINATE
     Indication: EXPOSURE DURING PREGNANCY
     Dosage: 100-200 MG, AS NECESSARY
     Route: 064
     Dates: start: 2019
  2. AIMOVIG [Suspect]
     Active Substance: ERENUMAB-AOOE
     Indication: MATERNAL EXPOSURE DURING PREGNANCY
     Dosage: 140 MILLIGRAM, QMO
     Route: 064
     Dates: start: 20191014
  3. AIMOVIG [Suspect]
     Active Substance: ERENUMAB-AOOE
     Dosage: 140 MILLIGRAM, QMO
     Route: 063
     Dates: start: 2019
  4. PRISTIQ EXTENDED-RELEASE [Concomitant]
     Active Substance: DESVENLAFAXINE SUCCINATE
     Indication: EXPOSURE DURING PREGNANCY
     Dosage: 50 MILLIGRAM, QD
     Route: 064
     Dates: start: 2019
  5. BOTOX [Concomitant]
     Active Substance: ONABOTULINUMTOXINA
     Indication: EXPOSURE DURING PREGNANCY
     Dosage: 200 UNIT
     Route: 064
     Dates: start: 2019
  6. ZYRTEC [Concomitant]
     Active Substance: CETIRIZINE HYDROCHLORIDE
     Dosage: UNK UNK, QD
     Route: 064
     Dates: start: 2009, end: 20191014

REACTIONS (3)
  - Exposure via breast milk [Unknown]
  - Thyroglossal cyst [Unknown]
  - Spina bifida [Unknown]

NARRATIVE: CASE EVENT DATE: 2019
